FAERS Safety Report 7999683-9 (Version None)
Quarter: 2011Q4

REPORT INFORMATION
  Report Type: 
  Country: None (occurrence: None)
  Receive Date: 20111221
  Receipt Date: 20111212
  Transmission Date: 20120403
  Serious: Yes (Other)
  Sender: FDA-Public Use
  Company Number: CN-ASTRAZENECA-2011SE75127

PATIENT

DRUGS (8)
  1. PROPOFOL [Suspect]
     Dosage: MAINTAINED WITH 2MG/KG.H
     Route: 042
  2. FENTANYL [Suspect]
     Indication: ANAESTHESIA
     Route: 042
  3. SODIUM CHLORIDE [Suspect]
     Indication: ANAESTHESIA
     Route: 042
  4. VALIUM [Suspect]
     Route: 030
  5. VECURONIUM BROMIDE [Suspect]
     Dosage: MAINTAINED WITH 0.4MG/KG.MIN
     Route: 042
  6. PROPOFOL [Suspect]
     Indication: ANAESTHESIA
     Route: 042
  7. VECURONIUM BROMIDE [Suspect]
     Indication: ANAESTHESIA
     Route: 042
  8. ATROPINE [Suspect]
     Route: 042

REACTIONS (1)
  - RESPIRATORY DEPRESSION [None]
